FAERS Safety Report 6107382-3 (Version None)
Quarter: 2009Q1

REPORT INFORMATION
  Report Type: 
  Country: None (occurrence: None)
  Receive Date: 20090309
  Receipt Date: 20090225
  Transmission Date: 20090719
  Serious: Yes (Hospitalization)
  Sender: FDA-Public Use
  Company Number: JP-NOVOPROD-284747

PATIENT
  Age: 58 Year
  Sex: Male
  Weight: 49.95 kg

DRUGS (9)
  1. NOVOLOG [Suspect]
     Indication: DIABETES MELLITUS
     Dosage: UNK, UNK
     Route: 058
  2. NOVOLIN N [Suspect]
     Indication: DIABETES MELLITUS
     Route: 058
  3. HUMALOG [Suspect]
     Indication: DIABETES MELLITUS
     Route: 058
     Dates: start: 20020501
  4. HUMULIN N [Suspect]
     Indication: DIABETES MELLITUS
     Route: 058
     Dates: start: 20020501
  5. ENTERIC ASPIRIN [Concomitant]
     Dosage: 100 MG, QD
  6. FUROSEMIDE [Concomitant]
     Dosage: 80 MG, QD
  7. FAMOTIDINE [Concomitant]
     Dosage: 10 MG, QD
  8. DILAZEP DIHYDROCHLORIDE [Concomitant]
     Dosage: 300 MG, QD
  9. CALCIUM CARBONATE [Concomitant]
     Dosage: 3 G, QD

REACTIONS (3)
  - ANTI-INSULIN ANTIBODY [None]
  - DIABETES MELLITUS INADEQUATE CONTROL [None]
  - RENAL IMPAIRMENT [None]
